FAERS Safety Report 7870468-7 (Version None)
Quarter: 2011Q4

REPORT INFORMATION
  Report Type: 
  Country: None (occurrence: None)
  Receive Date: 20111029
  Receipt Date: 20110216
  Transmission Date: 20120403
  Serious: No
  Sender: FDA-Public Use
  Company Number: US-AMGEN-USASP2011009199

PATIENT
  Age: 26 Year
  Sex: Female

DRUGS (1)
  1. ENBREL [Suspect]
     Indication: ANKYLOSING SPONDYLITIS
     Dosage: 50 MG, QWK
     Dates: start: 20101122, end: 20110101

REACTIONS (7)
  - INJECTION SITE SWELLING [None]
  - PYREXIA [None]
  - INJECTION SITE HAEMATOMA [None]
  - THROAT TIGHTNESS [None]
  - DIZZINESS [None]
  - INJECTION SITE REACTION [None]
  - PNEUMONIA [None]
